FAERS Safety Report 5837280-1 (Version None)
Quarter: 2008Q3

REPORT INFORMATION
  Report Type: 
  Country: None (occurrence: None)
  Receive Date: 20080807
  Receipt Date: 20080729
  Transmission Date: 20090109
  Serious: Yes (Hospitalization)
  Sender: FDA-Public Use
  Company Number: US-ELI_LILLY_AND_COMPANY-US200807005878

PATIENT
  Sex: Male

DRUGS (1)
  1. HUMALOG [Suspect]
     Route: 058

REACTIONS (1)
  - HOSPITALISATION [None]
